FAERS Safety Report 16329159 (Version 1)
Quarter: 2019Q2

REPORT INFORMATION
  Report Type: Spontaneous
  Country: US (occurrence: US)
  Receive Date: 20190520
  Receipt Date: 20190520
  Transmission Date: 20190711
  Serious: Yes (Other)
  Sender: FDA-Public Use
  Company Number: US-AMGEN INC.-USASP2019078207

PATIENT
  Age: 63 Year
  Sex: Female

DRUGS (1)
  1. AIMOVIG [Suspect]
     Active Substance: ERENUMAB-AOOE
     Indication: MIGRAINE PROPHYLAXIS
     Dosage: 140 MILLIGRAM, EVERY 28 DAYS
     Route: 065
     Dates: start: 20190323

REACTIONS (3)
  - Pneumonia [Unknown]
  - Sinusitis [Unknown]
  - Off label use [Unknown]

NARRATIVE: CASE EVENT DATE: 20190323
